FAERS Safety Report 4806209-7 (Version None)
Quarter: 2005Q4

REPORT INFORMATION
  Report Type: 
  Country: None (occurrence: None)
  Receive Date: 20051021
  Receipt Date: 20051017
  Transmission Date: 20060501
  Serious: Yes (Life-Threatening, Hospitalization)
  Sender: FDA-Public Use
  Company Number: 2005GB02026

PATIENT
  Age: 62 Year
  Sex: Male

DRUGS (3)
  1. ZOLMITRIPTAN [Suspect]
     Indication: MIGRAINE
     Route: 048
     Dates: end: 20050608
  2. PROPRANOLOL [Concomitant]
     Indication: MIGRAINE
     Route: 048
  3. CIMETIDINE [Concomitant]
     Indication: DYSPEPSIA
     Route: 048

REACTIONS (1)
  - CEREBRAL HAEMORRHAGE [None]
